FAERS Safety Report 6062683-2 (Version None)
Quarter: 2009Q1

REPORT INFORMATION
  Report Type: 
  Country: None (occurrence: None)
  Receive Date: 20090129
  Receipt Date: 20090119
  Transmission Date: 20090719
  Serious: Yes (Congenital Anomaly)
  Sender: FDA-Public Use
  Company Number: 1000003668

PATIENT

DRUGS (2)
  1. LEXAPRO [Suspect]
     Dosage: 15 MG (15 MG,1 IN 1 D),TRANSPLACENTAL ; 10 MG (10 MG,1 IN 1 D),TRANSPLACENTAL
     Route: 064
     Dates: end: 20080901
  2. LEXAPRO [Suspect]
     Dosage: 15 MG (15 MG,1 IN 1 D),TRANSPLACENTAL ; 10 MG (10 MG,1 IN 1 D),TRANSPLACENTAL
     Route: 064
     Dates: start: 20080901

REACTIONS (3)
  - CLEFT LIP [None]
  - CLEFT PALATE [None]
  - MATERNAL DRUGS AFFECTING FOETUS [None]
